FAERS Safety Report 7403488-7 (Version None)
Quarter: 2011Q2

REPORT INFORMATION
  Report Type: 
  Country: None (occurrence: None)
  Receive Date: 20110408
  Receipt Date: 20110313
  Transmission Date: 20111010
  Serious: No
  Sender: FDA-Public Use
  Company Number: US-BAYER-2011-023891

PATIENT
  Sex: Female
  Weight: 52 kg

DRUGS (1)
  1. ALEVE (CAPLET) [Suspect]
     Dosage: 2 DF, UNK
     Route: 048

REACTIONS (1)
  - NO ADVERSE EVENT [None]
